FAERS Safety Report 7313887-X (Version None)
Quarter: 2011Q1

REPORT INFORMATION
  Report Type: 
  Country: None (occurrence: None)
  Receive Date: 20110225
  Receipt Date: 20110217
  Transmission Date: 20110831
  Serious: Yes (Other)
  Sender: FDA-Public Use
  Company Number: CA-AMGEN-CANSP2011005634

PATIENT
  Age: 53 Year
  Sex: Female
  Weight: 108.9 kg

DRUGS (5)
  1. ENBREL [Suspect]
     Dosage: 50 MG, QWK
     Dates: start: 20080611, end: 20090101
  2. PLAQUENIL [Concomitant]
     Dosage: UNK
  3. METHOTREXATE [Concomitant]
     Dosage: UNK
     Route: 048
  4. ENBREL [Suspect]
     Indication: RHEUMATOID ARTHRITIS
     Dosage: 50 MG, QWK
  5. TYLENOL (CAPLET) [Concomitant]
     Dosage: UNK UNK, PRN

REACTIONS (9)
  - INJECTION SITE PRURITUS [None]
  - CHEST PAIN [None]
  - HEART RATE INCREASED [None]
  - ASTHENIA [None]
  - INJECTION SITE PAIN [None]
  - CHEST DISCOMFORT [None]
  - DIZZINESS [None]
  - FEELING ABNORMAL [None]
  - FEELING HOT [None]
